FAERS Safety Report 12343211 (Version 2)
Quarter: 2016Q2

REPORT INFORMATION
  Report Type: Spontaneous
  Country: US (occurrence: US)
  Receive Date: 20160506
  Receipt Date: 20160614
  Transmission Date: 20160815
  Serious: Yes (Hospitalization, Other)
  Sender: FDA-Public Use
  Company Number: US-ELI_LILLY_AND_COMPANY-US201605000910

PATIENT
  Age: 66 Year
  Sex: Male
  Weight: 97.96 kg

DRUGS (2)
  1. TRULICITY [Suspect]
     Active Substance: DULAGLUTIDE
     Indication: FLANK PAIN
     Dosage: 0.75 MG, WEEKLY (1/W)
     Route: 065
     Dates: start: 20150713, end: 20160411
  2. ASA [Concomitant]
     Active Substance: ASPIRIN

REACTIONS (2)
  - Pancreatitis [Recovered/Resolved]
  - Off label use [Recovered/Resolved]

NARRATIVE: CASE EVENT DATE: 20160411
